FAERS Safety Report 8817019 (Version 1)
Quarter: 2012Q4

REPORT INFORMATION
  Report Type: Spontaneous
  Country: US (occurrence: None)
  Receive Date: 20121003
  Receipt Date: 20121003
  Transmission Date: 20130627
  Serious: Yes (Other)
  Sender: FDA-Public Use
  Company Number: None

PATIENT
  Age: 45 Year
  Sex: Male
  Weight: 88.45 kg

DRUGS (1)
  1. DESONATE GEL [Suspect]
     Indication: RASH
     Dosage: on affected area, once daily, top
     Route: 061
     Dates: start: 20120803, end: 20121001

REACTIONS (8)
  - Back pain [None]
  - Incorrect drug administration duration [None]
  - Incorrect dose administered [None]
  - Neck pain [None]
  - Pain in extremity [None]
  - Nerve compression [None]
  - Repetitive strain injury [None]
  - Muscle strain [None]
